FAERS Safety Report 8399627-4 (Version None)
Quarter: 2012Q2

REPORT INFORMATION
  Report Type: 
  Country: None (occurrence: None)
  Receive Date: 20120323
  Receipt Date: 20111205
  Transmission Date: 20120825
  Serious: Yes (Death, Hospitalization, Disabling)
  Sender: FDA-Public Use
  Company Number: 163-21880-11072282

PATIENT
  Age: 72 Year
  Sex: Male
  Weight: 81.63 kg

DRUGS (9)
  1. K-DUR (POTASSIUM CHLORIDE)(UNKNOWN) [Concomitant]
  2. RESTORIL (TEMAZEPAM)(UNKNOWN) [Concomitant]
  3. ZOFRAN [Concomitant]
  4. CARDIZEM [Concomitant]
  5. ENSURE (ENSURE)(UNKNOWN) [Concomitant]
  6. REVLIMID [Suspect]
     Dosage: 25 MG, QD X 21 DAYS, THEN 7 DAYS OFF, PO
     Route: 048
     Dates: start: 20110616, end: 20110731
  7. DIFLUCAN [Concomitant]
  8. ALLOPURINOL [Concomitant]
  9. PACKED RED BLOOD CELL TRANSFUSION(RED BLOOD CELLS, CONCENTRATED)(UNKNO [Concomitant]

REACTIONS (5)
  - UROSEPSIS [None]
  - OEDEMA PERIPHERAL [None]
  - ASTHENIA [None]
  - DIARRHOEA [None]
  - DIZZINESS [None]
